FAERS Safety Report 14624159 (Version 1)
Quarter: 2018Q1

REPORT INFORMATION
  Report Type: Spontaneous
  Country: US (occurrence: US)
  Receive Date: 20180312
  Receipt Date: 20180312
  Transmission Date: 20180509
  Serious: Yes (Hospitalization)
  Sender: FDA-Public Use
  Company Number: US-FRESENIUS KABI-FK201802946

PATIENT
  Age: 40 Year
  Sex: Male

DRUGS (9)
  1. ANTI-THYMOCYTE GLOBULIN (RABBIT) NOS [Suspect]
     Active Substance: LAPINE T-LYMPHOCYTE IMMUNE GLOBULIN
     Indication: SOFT TISSUE SARCOMA
  2. TACROLIMUS. [Suspect]
     Active Substance: TACROLIMUS
     Indication: SOFT TISSUE SARCOMA
  3. RITUXIMAB. [Suspect]
     Active Substance: RITUXIMAB
     Indication: SOFT TISSUE SARCOMA
  4. DOXORUBICIN (MANUFACTURER UNKNOWN) [Suspect]
     Active Substance: DOXORUBICIN
     Indication: SOFT TISSUE SARCOMA
     Route: 065
  5. DACARBAZINE (MANUFACTURER UNKNOWN) [Suspect]
     Active Substance: DACARBAZINE
     Indication: SOFT TISSUE SARCOMA
     Route: 065
  6. IFOSFAMIDE (MANUFACTURER UNKNOWN) [Suspect]
     Active Substance: IFOSFAMIDE
     Indication: SOFT TISSUE SARCOMA
     Route: 065
  7. MESNA. [Concomitant]
     Active Substance: MESNA
     Indication: SOFT TISSUE SARCOMA
  8. MYCOPHENOLATE MOFETIL. [Suspect]
     Active Substance: MYCOPHENOLATE MOFETIL
     Indication: SOFT TISSUE SARCOMA
  9. BORTEZOMIB [Suspect]
     Active Substance: BORTEZOMIB
     Indication: CHRONIC KIDNEY DISEASE

REACTIONS (4)
  - BK virus infection [Recovered/Resolved]
  - Product use in unapproved indication [Recovered/Resolved]
  - Viral haemorrhagic cystitis [Recovered/Resolved]
  - Off label use [Recovered/Resolved]
